FAERS Safety Report 6246014-0 (Version None)
Quarter: 2009Q2

REPORT INFORMATION
  Report Type: 
  Country: None (occurrence: None)
  Receive Date: 20090626
  Receipt Date: 20081105
  Transmission Date: 20091009
  Serious: No
  Sender: FDA-Public Use
  Company Number: A0755191A

PATIENT
  Age: 53 Year
  Sex: Female

DRUGS (6)
  1. IMITREX [Suspect]
     Indication: MIGRAINE
     Dosage: 100MG AS REQUIRED
     Route: 048
  2. STAHIST [Concomitant]
  3. CENESTIN [Concomitant]
  4. TOPAMAX [Concomitant]
  5. VYTORIN [Concomitant]
  6. ZEGERID [Concomitant]

REACTIONS (1)
  - PERFORMANCE STATUS DECREASED [None]
